FAERS Safety Report 10284518 (Version 4)
Quarter: 2015Q1

REPORT INFORMATION
  Report Type: Spontaneous
  Country: NO (occurrence: NO)
  Receive Date: 20140708
  Receipt Date: 20150217
  Transmission Date: 20150720
  Serious: Yes (Hospitalization)
  Sender: FDA-Public Use
  Company Number: NO-ABBVIE-14P-122-1255590-00

PATIENT
  Age: 29 Year
  Sex: Male
  Weight: 80 kg

DRUGS (3)
  1. HUMIRA [Suspect]
     Active Substance: ADALIMUMAB
     Indication: ANKYLOSING SPONDYLITIS
     Route: 058
     Dates: start: 20090831
  2. IBUX [Concomitant]
     Active Substance: IBUPROFEN
     Indication: BACK PAIN
     Dosage: AS REQUIRED. SELDOM USE - NOT USED IN THE DAYS PRIOR TO THE NOSEBLEED
  3. TRAMADOL [Concomitant]
     Active Substance: TRAMADOL
     Indication: BACK PAIN
     Dosage: AS REQUIRED. SELDOM USE - NOT USED IN THE DAYS PRIOR TO THE NOSEBLEED

REACTIONS (7)
  - Pancytopenia [Unknown]
  - Platelet count decreased [Unknown]
  - Blood 25-hydroxycholecalciferol decreased [Unknown]
  - Iron binding capacity total increased [Unknown]
  - Platelet count decreased [Unknown]
  - Epistaxis [Recovered/Resolved]
  - Red blood cell count decreased [Unknown]

NARRATIVE: CASE EVENT DATE: 2014
